FAERS Safety Report 5618509-1 (Version None)
Quarter: 2008Q1

REPORT INFORMATION
  Report Type: 
  Country: None (occurrence: None)
  Receive Date: 20080207
  Receipt Date: 20080125
  Transmission Date: 20080703
  Serious: Yes (Hospitalization)
  Sender: FDA-Public Use
  Company Number: US-AMGEN-QUU262565

PATIENT
  Sex: Female

DRUGS (1)
  1. ENBREL [Suspect]
     Indication: DRUG USE FOR UNKNOWN INDICATION
     Route: 058
     Dates: start: 19980101

REACTIONS (8)
  - ARTHRITIS [None]
  - HIP ARTHROPLASTY [None]
  - INTERVERTEBRAL DISC PROTRUSION [None]
  - JOINT DISLOCATION [None]
  - MUSCULAR WEAKNESS [None]
  - OSTEOMYELITIS [None]
  - SCOLIOSIS [None]
  - SEPSIS [None]
